FAERS Safety Report 21366975 (Version 3)
Quarter: 2025Q1

REPORT INFORMATION
  Report Type: Spontaneous
  Country: US (occurrence: US)
  Receive Date: 20220923
  Receipt Date: 20250210
  Transmission Date: 20250409
  Serious: No
  Sender: SANOFI AVENTIS
  Company Number: US-SA-SAC20220916001721

PATIENT
  Age: 52 Year
  Sex: Female

DRUGS (28)
  1. DUPIXENT [Suspect]
     Active Substance: DUPILUMAB
     Indication: Asthma
     Dosage: 300MG QOW
     Route: 058
     Dates: start: 20220722
  2. ADVAIR HFA [Concomitant]
     Active Substance: FLUTICASONE PROPIONATE\SALMETEROL XINAFOATE
  3. WELLBUTRIN XL [Concomitant]
     Active Substance: BUPROPION HYDROCHLORIDE
  4. CLARITHROMYCIN [Concomitant]
     Active Substance: CLARITHROMYCIN
  5. COMBIVENT [Concomitant]
     Active Substance: ALBUTEROL SULFATE\IPRATROPIUM BROMIDE
  6. DESYREL [Concomitant]
     Active Substance: TRAZODONE HYDROCHLORIDE
  7. GABAPENTIN [Concomitant]
     Active Substance: GABAPENTIN
  8. LAMOTRIGINE [Concomitant]
     Active Substance: LAMOTRIGINE
  9. MONTELUKAST [Concomitant]
     Active Substance: MONTELUKAST
  10. OMEPRAZOLE [Concomitant]
     Active Substance: OMEPRAZOLE
  11. PREDNISONE [Concomitant]
     Active Substance: PREDNISONE
  12. VICTOZA [Concomitant]
     Active Substance: LIRAGLUTIDE
  13. VITAMIN B2 [Concomitant]
     Active Substance: RIBOFLAVIN
  14. WELLBUTRIN SR [Concomitant]
     Active Substance: BUPROPION HYDROCHLORIDE
  15. ZOFRAN [Concomitant]
     Active Substance: ONDANSETRON HYDROCHLORIDE
  16. CALCIUM D [CALCIUM CARBONATE;COLECALCIFEROL] [Concomitant]
  17. CYCLOBENZAPRINE [Concomitant]
     Active Substance: CYCLOBENZAPRINE
  18. ALBUTEROL\IPRATROPIUM [Concomitant]
     Active Substance: ALBUTEROL\IPRATROPIUM
  19. VITAMINS [Concomitant]
     Active Substance: VITAMINS
  20. CHOLECALCIFEROL [Concomitant]
     Active Substance: CHOLECALCIFEROL
  21. ZOFRAN [Concomitant]
     Active Substance: ONDANSETRON HYDROCHLORIDE
  22. VICTOZA [Concomitant]
     Active Substance: LIRAGLUTIDE
  23. VITAMIN B2 [Concomitant]
     Active Substance: RIBOFLAVIN
  24. CLARITIN [Concomitant]
     Active Substance: LORATADINE
  25. VITAMIN D3 [Concomitant]
     Active Substance: CHOLECALCIFEROL
  26. WELLBUTRIN [Concomitant]
     Active Substance: BUPROPION HYDROCHLORIDE
  27. ALBUTEROL\IPRATROPIUM [Concomitant]
     Active Substance: ALBUTEROL\IPRATROPIUM
  28. CALCIUM\VITAMIN D [Concomitant]
     Active Substance: CALCIUM\VITAMIN D

REACTIONS (3)
  - Impaired quality of life [Not Recovered/Not Resolved]
  - Asthma [Not Recovered/Not Resolved]
  - Inappropriate schedule of product administration [Unknown]

NARRATIVE: CASE EVENT DATE: 20220101
